FAERS Safety Report 9632338 (Version 1)
Quarter: 2013Q4

REPORT INFORMATION
  Report Type: Spontaneous
  Country: US (occurrence: GB)
  Receive Date: 20131018
  Receipt Date: 20131018
  Transmission Date: 20140711
  Serious: Yes (Other)
  Sender: FDA-Public Use
  Company Number: GB-PFIZER INC-2013297447

PATIENT
  Age: 62 Year
  Sex: Male

DRUGS (2)
  1. FLUOROURACIL [Suspect]
     Indication: GASTRIC CANCER
     Dosage: 150 MG, DAILY
     Route: 040
  2. VINCRISTINE [Concomitant]
     Indication: GASTRIC CANCER
     Dosage: 2 MG, SINGLE
     Route: 042

REACTIONS (1)
  - Myocardial infarction [Unknown]
